FAERS Safety Report 25574578 (Version 2)
Quarter: 2025Q3

REPORT INFORMATION
  Report Type: Report from Study
  Country: US (occurrence: US)
  Receive Date: 20250718
  Receipt Date: 20250722
  Transmission Date: 20251021
  Serious: No
  Sender: SANDOZ
  Company Number: US-SANDOZ-SDZ2025US050454

PATIENT
  Age: 11 Year
  Sex: Female

DRUGS (6)
  1. OMNITROPE [Suspect]
     Active Substance: SOMATROPIN
     Indication: Hypopituitarism
     Dosage: 1.2 MG, QD
     Route: 058
     Dates: start: 20250715
  2. OMNITROPE [Suspect]
     Active Substance: SOMATROPIN
     Indication: Hypopituitarism
     Dosage: 1.2 MG, QD
     Route: 058
     Dates: start: 20250715
  3. OMNITROPE [Suspect]
     Active Substance: SOMATROPIN
     Dosage: 1.5MG/DAY X 7 DAYS A WEEK
     Route: 058
     Dates: start: 20250715
  4. OMNITROPE [Suspect]
     Active Substance: SOMATROPIN
     Dosage: 1.5MG/DAY X 7 DAYS A WEEK
     Route: 058
     Dates: start: 20250715
  5. OMNITROPE [Suspect]
     Active Substance: SOMATROPIN
     Dosage: 1.2 MG, QD
     Route: 058
  6. OMNITROPE [Suspect]
     Active Substance: SOMATROPIN
     Dosage: 1.2 MG, QD
     Route: 058

REACTIONS (7)
  - Injection site pain [Unknown]
  - Crying [Unknown]
  - Circumstance or information capable of leading to medication error [Unknown]
  - Accidental exposure to product [Unknown]
  - Wrong technique in product usage process [Unknown]
  - Product knowledge deficit [Unknown]
  - Device leakage [Unknown]

NARRATIVE: CASE EVENT DATE: 20250715
